FAERS Safety Report 24527092 (Version 1)
Quarter: 2024Q4

REPORT INFORMATION
  Report Type: Spontaneous
  Country: FR (occurrence: FR)
  Receive Date: 20241021
  Receipt Date: 20241021
  Transmission Date: 20250114
  Serious: No
  Sender: ROCHE
  Company Number: None

PATIENT
  Age: 68 Year
  Sex: Female
  Weight: 78.0 kg

DRUGS (1)
  1. COTELLIC [Suspect]
     Active Substance: COBIMETINIB
     Indication: Histiocytosis
     Dosage: 20 MG/DAY 21 DAYS OUT OF 28 CONTINUED FOR 3 CYCLES BETWEEN SEPTEMBER AND THE END OF NOVEMBER 2022
     Route: 065
     Dates: start: 202209, end: 202211

REACTIONS (1)
  - Dropped head syndrome [Recovered/Resolved]

NARRATIVE: CASE EVENT DATE: 20221101
